FAERS Safety Report 18424559 (Version 4)
Quarter: 2021Q3

REPORT INFORMATION
  Report Type: Report from Study
  Country: ES (occurrence: ES)
  Receive Date: 20201026
  Receipt Date: 20210714
  Transmission Date: 20211014
  Serious: Yes (Hospitalization, Other)
  Sender: FDA-Public Use
  Company Number: ES-AUROBINDO-AUR-APL-2018-056268

PATIENT
  Age: 63 Year
  Sex: Male

DRUGS (3)
  1. ERTAPENEM POWDER FOR CONCENTRATE FOR SOLUTION FOR INFUSION [Suspect]
     Active Substance: ERTAPENEM
     Indication: URINARY TRACT INFECTION
     Dosage: 1 GRAM, 14 DAY
     Route: 041
     Dates: start: 20181022, end: 20181024
  2. ERTAPENEM POWDER FOR CONCENTRATE FOR SOLUTION FOR INFUSION [Suspect]
     Active Substance: ERTAPENEM
     Dosage: 1 GRAM, ONCE A DAY
     Route: 065
  3. ERTAPENEM POWDER FOR CONCENTRATE FOR SOLUTION FOR INFUSION [Suspect]
     Active Substance: ERTAPENEM
     Indication: PYELONEPHRITIS
     Dosage: 1 GRAM, ONCE A DAY
     Route: 041
     Dates: start: 20181022, end: 20181024

REACTIONS (5)
  - Product use in unapproved indication [Unknown]
  - Neurotoxicity [Recovered/Resolved]
  - Confusional state [Recovered/Resolved]
  - Catheter removal [Recovered/Resolved]
  - Product use issue [Unknown]

NARRATIVE: CASE EVENT DATE: 201810
